FAERS Safety Report 17313382 (Version 2)
Quarter: 2020Q2

REPORT INFORMATION
  Report Type: Report from Study
  Country: US (occurrence: US)
  Receive Date: 20200124
  Receipt Date: 20200429
  Transmission Date: 20200713
  Serious: Yes (Other)
  Sender: FDA-Public Use
  Company Number: NVSC2020US011084

PATIENT
  Age: 77 Year
  Sex: Female

DRUGS (2)
  1. BEOVU [Suspect]
     Active Substance: BROLUCIZUMAB-DBLL
     Indication: NEOVASCULAR AGE-RELATED MACULAR DEGENERATION
     Dosage: UNK(VIAL)
     Route: 047
     Dates: start: 20200113
  2. BEOVU [Suspect]
     Active Substance: BROLUCIZUMAB-DBLL
     Route: 047

REACTIONS (5)
  - Cataract [Unknown]
  - Visual impairment [Unknown]
  - Reading disorder [Unknown]
  - Vision blurred [Unknown]
  - Injection site discomfort [Recovering/Resolving]

NARRATIVE: CASE EVENT DATE: 20200113
